FAERS Safety Report 8596199 (Version 2)
Quarter: 2013Q2

REPORT INFORMATION
  Report Type: Spontaneous
  Country: US (occurrence: US)
  Receive Date: 20120605
  Receipt Date: 20130621
  Transmission Date: 20140414
  Serious: No
  Sender: FDA-Public Use
  Company Number: US-ASTRAZENECA-2012SE34807

PATIENT
  Age: 33 Year
  Sex: Female

DRUGS (4)
  1. NEXIUM [Suspect]
     Indication: DYSPEPSIA
     Dosage: ONCE A DAY
     Route: 048
  2. MAALOX [Concomitant]
     Dates: start: 199305
  3. MYLANTA [Concomitant]
     Dates: start: 199305
  4. HYDROCHLOROTHIAZIDE [Concomitant]

REACTIONS (7)
  - Osteoporosis [Unknown]
  - Anxiety [Unknown]
  - Arthritis [Unknown]
  - Fall [Unknown]
  - Intervertebral disc degeneration [Unknown]
  - Multiple fractures [Unknown]
  - Depression [Unknown]
